FAERS Safety Report 14721334 (Version 2)
Quarter: 2018Q2

REPORT INFORMATION
  Report Type: Spontaneous
  Country: US (occurrence: US)
  Receive Date: 20180405
  Receipt Date: 20180417
  Transmission Date: 20180711
  Serious: No
  Sender: FDA-Public Use
  Company Number: US-MERZ NORTH AMERICA, INC.-18MRZ-00148

PATIENT
  Age: 66 Year
  Sex: Female

DRUGS (1)
  1. XEOMIN [Suspect]
     Active Substance: INCOBOTULINUMTOXINA
     Indication: PRODUCT USED FOR UNKNOWN INDICATION
     Dosage: NO CHANGE TO DRUG THERAPY.
     Dates: start: 201803, end: 201803

REACTIONS (1)
  - Eyelid ptosis [Recovering/Resolving]

NARRATIVE: CASE EVENT DATE: 2018
